FAERS Safety Report 25701153 (Version 1)
Quarter: 2025Q3

REPORT INFORMATION
  Report Type: Spontaneous
  Country: US (occurrence: US)
  Receive Date: 20250819
  Receipt Date: 20250819
  Transmission Date: 20251021
  Serious: Yes (Death, Hospitalization, Other)
  Sender: SLATE RUN
  Company Number: US-SLATERUN-2025SRLIT00153

PATIENT
  Age: 57 Year
  Sex: Male

DRUGS (3)
  1. CISATRACURIUM [Suspect]
     Active Substance: CISATRACURIUM
     Indication: Ventricular dyssynchrony
     Route: 065
  2. HEPARIN [Concomitant]
     Active Substance: HEPARIN SODIUM
     Route: 065
  3. ROCURONIUM [Concomitant]
     Active Substance: ROCURONIUM BROMIDE
     Indication: Product used for unknown indication
     Route: 042

REACTIONS (1)
  - Hyperthermia malignant [Fatal]
